FAERS Safety Report 4356239-7 (Version None)
Quarter: 2004Q2

REPORT INFORMATION
  Report Type: 
  Country: None (occurrence: None)
  Receive Date: 20040511
  Receipt Date: 20040323
  Transmission Date: 20050107
  Serious: Yes (Life-Threatening, Hospitalization)
  Sender: FDA-Public Use
  Company Number: F01200400597

PATIENT
  Age: 82 Year
  Sex: Female

DRUGS (12)
  1. (OXALIPLATIN) - SOLUTION - 130 MG/M2 [Suspect]
     Indication: COLORECTAL CANCER
     Dosage: 130 MG/M2 Q3W, INTRAVENOUS NOS
     Route: 042
     Dates: start: 20040318, end: 20040318
  2. (CAPECITABINE) - TABLET - 850 MG/M [Suspect]
     Dosage: 850 MG/M2 TWICE DAILY FROM D1 TO D15, Q3W, ORAL
     Route: 048
     Dates: start: 20040318, end: 20040318
  3. AVASTIN [Suspect]
     Dosage: 7.5 MG/KG OVER 30-90 MINUTES IV INFUSION ON DAY 1, Q3W, INTRAVENOUS NOS
     Route: 042
     Dates: start: 20040318, end: 20040318
  4. LOPID [Concomitant]
  5. VITAMIN [Concomitant]
  6. CALCIUM [Concomitant]
  7. QUININE [Concomitant]
  8. PROTONIX [Concomitant]
  9. TYLENOL [Concomitant]
  10. PHENERGAN [Concomitant]
  11. MORPHINE [Concomitant]
  12. REGLAN [Concomitant]

REACTIONS (16)
  - ACTIVATED PARTIAL THROMBOPLASTIN TIME SHORTENED [None]
  - ANAEMIA [None]
  - BLOOD GLUCOSE DECREASED [None]
  - BLOOD SODIUM DECREASED [None]
  - BLOOD UREA INCREASED [None]
  - CARCINOEMBRYONIC ANTIGEN INCREASED [None]
  - COAGULOPATHY [None]
  - DUODENAL ULCER [None]
  - GASTRITIS [None]
  - GASTROINTESTINAL HAEMORRHAGE [None]
  - HAEMATEMESIS [None]
  - HAEMOGLOBIN DECREASED [None]
  - HYPERPLASIA [None]
  - LEUKOCYTOSIS [None]
  - NEUTROPHIL COUNT INCREASED [None]
  - RECTAL HAEMORRHAGE [None]
